FAERS Safety Report 23987802 (Version 2)
Quarter: 2024Q3

REPORT INFORMATION
  Report Type: Spontaneous
  Country: BE (occurrence: BE)
  Receive Date: 20240619
  Receipt Date: 20240802
  Transmission Date: 20241017
  Serious: Yes (Other)
  Sender: NOVO NORDISK
  Company Number: BE-NOVOPROD-1239012

PATIENT
  Sex: Female
  Weight: 80 kg

DRUGS (4)
  1. RYBELSUS [Suspect]
     Active Substance: SEMAGLUTIDE
     Indication: Obesity
     Dosage: 3 MG, QD
     Route: 048
     Dates: start: 20240205, end: 20240207
  2. EFFEXOR XR [Concomitant]
     Active Substance: VENLAFAXINE HYDROCHLORIDE
     Dosage: 75 BID
     Route: 048
  3. BELSAR [ALUMINIUM HYDROXIDE-MAGNESIUM CARBONATE GEL;DIMETICONE;MAGNESI [Concomitant]
     Dosage: 40 Q D
     Route: 048
  4. SEDACID [OMEPRAZOLE] [Concomitant]
     Dosage: 20 QD
     Route: 048

REACTIONS (2)
  - Depression suicidal [Recovered/Resolved]
  - Off label use [Recovered/Resolved]

NARRATIVE: CASE EVENT DATE: 20240205
